FAERS Safety Report 22979853 (Version 6)
Quarter: 2023Q4

REPORT INFORMATION
  Report Type: Spontaneous
  Country: US (occurrence: US)
  Receive Date: 20230925
  Receipt Date: 20231229
  Transmission Date: 20240110
  Serious: No
  Sender: FDA-Public Use
  Company Number: US-PFIZER INC-PV202300159820

PATIENT
  Age: 60 Year
  Sex: Female

DRUGS (3)
  1. IBRANCE [Suspect]
     Active Substance: PALBOCICLIB
     Dosage: UNK, CYCLIC
  2. IBRANCE [Suspect]
     Active Substance: PALBOCICLIB
     Dosage: 75 MG, CYCLIC (EVERY DAY FOR THE FIRST 21 DAYS)
  3. LETROZOLE [Concomitant]
     Active Substance: LETROZOLE

REACTIONS (9)
  - White blood cell count decreased [Unknown]
  - Red blood cell count decreased [Unknown]
  - Nausea [Unknown]
  - Fatigue [Unknown]
  - Somnolence [Unknown]
  - Migraine [Unknown]
  - Neutrophil count decreased [Unknown]
  - Product dose omission issue [Unknown]
  - Wrong dose [Unknown]

NARRATIVE: CASE EVENT DATE: 20231001
